FAERS Safety Report 24297520 (Version 2)
Quarter: 2024Q3

REPORT INFORMATION
  Report Type: Spontaneous
  Country: CL (occurrence: CL)
  Receive Date: 20240909
  Receipt Date: 20240909
  Transmission Date: 20241017
  Serious: Yes (Hospitalization)
  Sender: PFIZER
  Company Number: CL-PFIZER INC-202400238448

PATIENT
  Age: 79 Year
  Sex: Male
  Weight: 80 kg

DRUGS (10)
  1. DEPO-MEDROL [Suspect]
     Active Substance: METHYLPREDNISOLONE ACETATE
     Indication: Asthma
     Dosage: 40 MG, 2X/DAY
     Route: 042
     Dates: start: 20240814, end: 20240815
  2. CEFTAZIDIME [Concomitant]
     Active Substance: CEFTAZIDIME
     Indication: Pneumonia
     Dosage: 2 G, 3X/DAY
  3. DALTEPARIN [Concomitant]
     Active Substance: DALTEPARIN
     Indication: Thrombosis
     Dosage: 7500 IU, 1X/DAY
  4. OMEPRAZOLE [Concomitant]
     Active Substance: OMEPRAZOLE
     Indication: Stress ulcer
     Dosage: 40 MG, 1X/DAY
  5. BISOPROLOL [Concomitant]
     Active Substance: BISOPROLOL\BISOPROLOL FUMARATE
     Indication: Hypertension
     Dosage: 1.25 MG, 2X/DAY
  6. MONTELUKAST [Concomitant]
     Active Substance: MONTELUKAST SODIUM
     Indication: Asthma
     Dosage: 10 MG, 1X/DAY
  7. SALMETEROL/FLUTICASONE ABASCUS MEDICINE [Concomitant]
     Indication: Asthma
     Dosage: 4 PUFF, 2X/DAY
  8. IPRATROPIUM BROMIDE [Concomitant]
     Active Substance: IPRATROPIUM BROMIDE\IPRATROPIUM BROMIDE ANHYDROUS
     Indication: Asthma
     Dosage: 4 PUFF, 4X/DAY
  9. ALBUTEROL [Concomitant]
     Active Substance: ALBUTEROL
     Indication: Asthma
     Dosage: 2 PUFF, EVERY 4 HRS
  10. MAGNESIUM SULFATE [Concomitant]
     Active Substance: MAGNESIUM SULFATE\MAGNESIUM SULFATE HEPTAHYDRATE
     Indication: Asthma
     Dosage: 2 AMPOULE, 3X/DAY

REACTIONS (4)
  - Product prescribing error [Recovering/Resolving]
  - Product dispensing error [Recovering/Resolving]
  - Incorrect route of product administration [Recovering/Resolving]
  - Thrombosis in device [Recovering/Resolving]

NARRATIVE: CASE EVENT DATE: 20240815
